FAERS Safety Report 6765427-1 (Version None)
Quarter: 2010Q2

REPORT INFORMATION
  Report Type: 
  Country: None (occurrence: None)
  Receive Date: 20100611
  Receipt Date: 20100603
  Transmission Date: 20101027
  Serious: Yes (Hospitalization, Other)
  Sender: FDA-Public Use
  Company Number: US-ABBOTT-08P-163-0481015-00

PATIENT
  Sex: Male
  Weight: 93.07 kg

DRUGS (8)
  1. HUMIRA [Suspect]
     Indication: PSORIASIS
     Route: 058
     Dates: start: 20070801, end: 20080901
  2. HUMIRA [Suspect]
     Dates: start: 20081201
  3. SANDOSTATIN [Concomitant]
     Indication: FLUSHING
  4. SANDOSTATIN [Concomitant]
     Indication: PROPHYLAXIS AGAINST DIARRHOEA
  5. SANDOSTATIN [Concomitant]
     Indication: SERUM SEROTONIN INCREASED
  6. SANDOSTATIN [Concomitant]
     Indication: PROPHYLAXIS
  7. ACTIGALL [Concomitant]
     Indication: BLOOD BILIRUBIN INCREASED
  8. ZOMETA [Concomitant]
     Indication: BONE DISORDER
     Route: 042

REACTIONS (6)
  - BONE CANCER METASTATIC [None]
  - COLON CANCER [None]
  - HEPATIC CANCER METASTATIC [None]
  - LARGE INTESTINE CARCINOMA [None]
  - NEPHROLITHIASIS [None]
  - PSYCHOSIS POSTOPERATIVE [None]
